FAERS Safety Report 20417951 (Version 3)
Quarter: 2022Q1

REPORT INFORMATION
  Report Type: Report from Study
  Country: US (occurrence: US)
  Receive Date: 20220202
  Receipt Date: 20220302
  Transmission Date: 20220424
  Serious: Yes (Hospitalization, Other)
  Sender: FDA-Public Use
  Company Number: US-SEATTLE GENETICS-2022SGN00506

PATIENT
  Age: 64 Year
  Sex: Female

DRUGS (2)
  1. TUCATINIB [Suspect]
     Active Substance: TUCATINIB
     Indication: Product used for unknown indication
     Dosage: 150 MG
     Route: 065
  2. TUCATINIB [Suspect]
     Active Substance: TUCATINIB
     Dosage: 150 UNK
     Route: 065

REACTIONS (7)
  - Haemorrhage [Unknown]
  - Gastrointestinal haemorrhage [Unknown]
  - Colitis [Unknown]
  - Peripheral swelling [Unknown]
  - Foot deformity [Unknown]
  - Frustration tolerance decreased [Unknown]
  - Nasopharyngitis [Unknown]

NARRATIVE: CASE EVENT DATE: 20220216
